FAERS Safety Report 8355163-2 (Version None)
Quarter: 2012Q2

REPORT INFORMATION
  Report Type: 
  Country: None (occurrence: None)
  Receive Date: 20120510
  Receipt Date: 20120427
  Transmission Date: 20120825
  Serious: Yes (Other)
  Sender: FDA-Public Use
  Company Number: 2012AP001259

PATIENT
  Age: 48 Year
  Sex: Male

DRUGS (2)
  1. LANSOPRAZOLE [Concomitant]
  2. RAMIPRIL [Suspect]
     Indication: HYPERTENSION
     Dosage: 2.5 MG; PO; QD
     Route: 048
     Dates: start: 20120416, end: 20120417

REACTIONS (3)
  - MUSCULOSKELETAL PAIN [None]
  - CHEST PAIN [None]
  - MALAISE [None]
